FAERS Safety Report 8078574-1 (Version None)
Quarter: 2012Q1

REPORT INFORMATION
  Report Type: 
  Country: None (occurrence: None)
  Receive Date: 20120123
  Receipt Date: 20120109
  Transmission Date: 20120608
  Serious: Yes (Other)
  Sender: FDA-Public Use
  Company Number: 2012MA000547

PATIENT
  Age: 9 Month
  Sex: Female

DRUGS (2)
  1. PRILOCAINE HYDROCHLORIDE [Suspect]
     Dosage: TOP
     Route: 061
  2. LIDOCAINE [Suspect]
     Dosage: 1 %; X1; TOP
     Route: 061

REACTIONS (3)
  - TOXICITY TO VARIOUS AGENTS [None]
  - DERMATITIS BULLOUS [None]
  - DERMATITIS CONTACT [None]
